FAERS Safety Report 7928326-5 (Version None)
Quarter: 2011Q4

REPORT INFORMATION
  Report Type: 
  Country: None (occurrence: None)
  Receive Date: 20111118
  Receipt Date: 20111116
  Transmission Date: 20120403
  Serious: Yes (Other)
  Sender: FDA-Public Use
  Company Number: US-BAYER-2011-111290

PATIENT
  Age: 69 Year
  Sex: Male
  Weight: 61 kg

DRUGS (1)
  1. ONE-A-DAY MEN'S 50 + ADVANTAGE [Suspect]
     Dosage: 1 DF, ONCE
     Dates: start: 20110915

REACTIONS (2)
  - CHOKING [None]
  - FOREIGN BODY [None]
